FAERS Safety Report 20868295 (Version 2)
Quarter: 2022Q2

REPORT INFORMATION
  Report Type: Report from Study
  Country: US (occurrence: US)
  Receive Date: 20220524
  Receipt Date: 20220608
  Transmission Date: 20220721
  Serious: No
  Sender: FDA-Public Use
  Company Number: US-KYOWAKIRIN-2022BKK006405

PATIENT

DRUGS (4)
  1. CRYSVITA [Suspect]
     Active Substance: BUROSUMAB-TWZA
     Indication: Hereditary hypophosphataemic rickets
     Dosage: 10 MG/ML, 1X/2 WEEKS (EVERY 14 DAYS)
     Route: 065
     Dates: start: 20220303
  2. CRYSVITA [Suspect]
     Active Substance: BUROSUMAB-TWZA
     Dosage: UNK
     Route: 065
     Dates: start: 20220426
  3. D-VI-SOL [Concomitant]
     Indication: Vitamin supplementation
     Dosage: UNK, BID
     Route: 048
  4. FLINTSTONES MULTIVITAMINS WITH IRON [Concomitant]
     Indication: Vitamin supplementation
     Dosage: HALF, QD
     Route: 048

REACTIONS (1)
  - Restless legs syndrome [Not Recovered/Not Resolved]

NARRATIVE: CASE EVENT DATE: 20220425
